FAERS Safety Report 6198888-X (Version None)
Quarter: 2009Q2

REPORT INFORMATION
  Report Type: 
  Country: None (occurrence: None)
  Receive Date: 20090519
  Receipt Date: 20090519
  Transmission Date: 20091009
  Serious: Yes (Other)
  Sender: FDA-Public Use
  Company Number: None

PATIENT

DRUGS (1)
  1. LUBIPROSTONE 4 MCG/O MCG PRESCRIPTION [Suspect]
     Indication: IRRITABLE BOWEL SYNDROME
     Dosage: 2 - TWICE A DAY- WITH FOOD 2 WEEKS PO
     Route: 048
     Dates: start: 20090416, end: 20090514

REACTIONS (7)
  - ABDOMINAL DISTENSION [None]
  - CONSTIPATION [None]
  - DEFAECATION URGENCY [None]
  - FLATULENCE [None]
  - NAUSEA [None]
  - OBSTRUCTION [None]
  - WEIGHT INCREASED [None]
